FAERS Safety Report 15337348 (Version 2)
Quarter: 2018Q4

REPORT INFORMATION
  Report Type: Spontaneous
  Country: DE (occurrence: DE)
  Receive Date: 20180831
  Receipt Date: 20181025
  Transmission Date: 20190204
  Serious: Yes (Hospitalization, Other)
  Sender: FDA-Public Use
  Company Number: DE-AUROBINDO-AUR-APL-2018-043650

PATIENT
  Age: 49 Year
  Sex: Male
  Weight: 130 kg

DRUGS (1)
  1. RAMIPRIL-ISIS 2,5 MG TABLET [Suspect]
     Active Substance: HYDROCHLOROTHIAZIDE\RAMIPRIL
     Indication: HYPERTENSION
     Dosage: 5 MILLIGRAM, ONCE A DAY
     Route: 048
     Dates: start: 20180119, end: 20180129

REACTIONS (7)
  - Anxiety [Recovered/Resolved]
  - Epistaxis [Recovered/Resolved]
  - Hypersensitivity vasculitis [Recovered/Resolved]
  - Blood urine present [Recovered/Resolved]
  - Skin haemorrhage [Recovered/Resolved]
  - Hypersensitivity [Recovered/Resolved]
  - Haematuria [Recovered/Resolved]

NARRATIVE: CASE EVENT DATE: 201801
